FAERS Safety Report 8118207-9 (Version None)
Quarter: 2012Q1

REPORT INFORMATION
  Report Type: 
  Country: None (occurrence: None)
  Receive Date: 20120131
  Receipt Date: 20120124
  Transmission Date: 20120608
  Serious: Yes (Life-Threatening, Hospitalization, Other)
  Sender: FDA-Public Use
  Company Number: 2011SP042390

PATIENT
  Age: 68 Year
  Sex: Female
  Weight: 54.5 kg

DRUGS (15)
  1. IRBESARTAN [Concomitant]
  2. SAKECALTON [Concomitant]
  3. ELCITONIN [Concomitant]
  4. VOLTAREN [Concomitant]
  5. REBETOL [Suspect]
     Indication: HEPATITIS C
     Dosage: SEE IMAGE
     Route: 048
     Dates: start: 20100507, end: 20100603
  6. REBETOL [Suspect]
     Indication: HEPATITIS C
     Dosage: SEE IMAGE
     Route: 048
     Dates: start: 20100604, end: 20100817
  7. REBETOL [Suspect]
     Indication: HEPATITIS C
     Dosage: SEE IMAGE
     Route: 048
     Dates: start: 20100405, end: 20100506
  8. REBETOL [Suspect]
     Indication: HEPATITIS C
     Dosage: SEE IMAGE
     Route: 048
     Dates: start: 20101224, end: 20110116
  9. REBETOL [Suspect]
     Indication: HEPATITIS C
     Dosage: SEE IMAGE
     Route: 048
     Dates: start: 20110128, end: 20110415
  10. REBETOL [Suspect]
     Indication: HEPATITIS C
     Dosage: SEE IMAGE
     Route: 048
     Dates: start: 20100827, end: 20101105
  11. REBETOL [Suspect]
     Indication: HEPATITIS C
     Dosage: SEE IMAGE
     Route: 048
     Dates: start: 20110117, end: 20110127
  12. ALFAROL [Concomitant]
  13. PEG-INTRON [Suspect]
     Indication: HEPATITIS C
     Dosage: 80 MCG; QW; SC
     Route: 058
     Dates: start: 20110114, end: 20110415
  14. INTERFERON [Suspect]
     Indication: HEPATITIS C
     Dosage: 6 MIU; TIW; IV, 6 MIU; BIW; IV
     Route: 042
     Dates: start: 20100405, end: 20101105
  15. INTERFERON [Suspect]
     Indication: HEPATITIS C
     Dosage: 6 MIU; TIW; IV, 6 MIU; BIW; IV
     Route: 042
     Dates: start: 20101224, end: 20110112

REACTIONS (3)
  - THERAPEUTIC RESPONSE DECREASED [None]
  - WHITE BLOOD CELL COUNT DECREASED [None]
  - HEPATIC NEOPLASM MALIGNANT [None]
